FAERS Safety Report 4292994-2 (Version None)
Quarter: 2004Q1

REPORT INFORMATION
  Report Type: 
  Country: None (occurrence: None)
  Receive Date: 20040212
  Receipt Date: 20030807
  Transmission Date: 20041129
  Serious: No
  Sender: FDA-Public Use
  Company Number: US-GLAXOSMITHKLINE-A0419984A

PATIENT
  Age: 38 Year
  Sex: Female
  Weight: 53.6 kg

DRUGS (2)
  1. PAXIL [Suspect]
     Indication: POSTPARTUM DEPRESSION
     Route: 048
     Dates: start: 20011201
  2. SYNTHROID [Concomitant]
     Indication: HYPOTHYROIDISM

REACTIONS (7)
  - ANXIETY [None]
  - CRYING [None]
  - DEPRESSION [None]
  - EMOTIONAL DISORDER [None]
  - PREMENSTRUAL SYNDROME [None]
  - TENSION [None]
  - WEIGHT INCREASED [None]
